FAERS Safety Report 21422333 (Version 1)
Quarter: 2022Q4

REPORT INFORMATION
  Report Type: Spontaneous
  Country: US (occurrence: None)
  Receive Date: 20221007
  Receipt Date: 20221007
  Transmission Date: 20230112
  Serious: Yes (Hospitalization, Other)
  Sender: FDA-Public Use
  Company Number: US-MLMSERVICE-20220921-3807545-1

PATIENT
  Age: 69 Year
  Sex: Female

DRUGS (2)
  1. DEXAMETHASONE [Suspect]
     Active Substance: DEXAMETHASONE
     Indication: COVID-19 pneumonia
     Dosage: UNKNOWN
     Route: 065
  2. REMDESIVIR [Concomitant]
     Active Substance: REMDESIVIR
     Indication: COVID-19 pneumonia
     Dosage: UNKNOWN
     Route: 065

REACTIONS (7)
  - Hypersexuality [Recovered/Resolved]
  - Hallucinations, mixed [Recovered/Resolved]
  - Judgement impaired [Recovered/Resolved]
  - Catatonia [Recovered/Resolved]
  - Paranoia [Recovered/Resolved]
  - Affect lability [Recovered/Resolved]
  - Pressure of speech [Recovered/Resolved]
